FAERS Safety Report 26065458 (Version 1)
Quarter: 2025Q4

REPORT INFORMATION
  Report Type: Spontaneous
  Country: CA (occurrence: CA)
  Receive Date: 20251119
  Receipt Date: 20251119
  Transmission Date: 20260117
  Serious: Yes (Life-Threatening)
  Sender: ABBVIE
  Company Number: CA-ABBVIE-6554371

PATIENT
  Age: 67 Year
  Sex: Male
  Weight: 105 kg

DRUGS (1)
  1. MESALAMINE [Suspect]
     Active Substance: MESALAMINE
     Indication: Colitis ulcerative
     Dosage: DOSE FORM: TABLET DELAYED RELEASE
     Route: 048

REACTIONS (2)
  - Septic shock [Recovering/Resolving]
  - Agranulocytosis [Recovering/Resolving]
